FAERS Safety Report 24198094 (Version 1)
Quarter: 2024Q3

REPORT INFORMATION
  Report Type: Report from Study
  Country: US (occurrence: US)
  Receive Date: 20240812
  Receipt Date: 20240812
  Transmission Date: 20241016
  Serious: Yes (Other)
  Sender: ABBVIE
  Company Number: US-ABBVIE-5871955

PATIENT
  Sex: Female

DRUGS (1)
  1. SKYRIZI [Suspect]
     Active Substance: RISANKIZUMAB-RZAA
     Indication: Psoriasis
     Route: 058
     Dates: start: 20221115

REACTIONS (6)
  - Oophorectomy [Not Recovered/Not Resolved]
  - Tooth infection [Not Recovered/Not Resolved]
  - Feeding disorder [Not Recovered/Not Resolved]
  - Cyst [Not Recovered/Not Resolved]
  - Tooth impacted [Not Recovered/Not Resolved]
  - Purulent discharge [Not Recovered/Not Resolved]
